FAERS Safety Report 5146131-2 (Version None)
Quarter: 2006Q4

REPORT INFORMATION
  Report Type: 
  Country: None (occurrence: None)
  Receive Date: 20061108
  Receipt Date: 20061030
  Transmission Date: 20070319
  Serious: Yes (Other)
  Sender: FDA-Public Use
  Company Number: 2006AC02021

PATIENT
  Sex: Female

DRUGS (2)
  1. MERONEM [Suspect]
     Route: 042
  2. DEPAKENE [Interacting]

REACTIONS (2)
  - DRUG INTERACTION [None]
  - EPILEPSY [None]
